FAERS Safety Report 5159028-9 (Version None)
Quarter: 2006Q4

REPORT INFORMATION
  Report Type: 
  Country: None (occurrence: None)
  Receive Date: 20061117
  Receipt Date: 20061107
  Transmission Date: 20070319
  Serious: Yes (Hospitalization)
  Sender: FDA-Public Use
  Company Number: GXKR2006FR06561

PATIENT
  Age: 39 Year
  Sex: Male
  Weight: 76 kg

DRUGS (2)
  1. PAROXETINE [Suspect]
     Dosage: ORAL
     Route: 048
     Dates: start: 20060908
  2. ALCOHOL (ETHANOL) [Concomitant]

REACTIONS (12)
  - AGITATION [None]
  - ANXIETY [None]
  - ASTHENIA [None]
  - HYPERHIDROSIS [None]
  - INSOMNIA [None]
  - NAUSEA [None]
  - PANIC ATTACK [None]
  - SOMNOLENCE [None]
  - VERTIGO [None]
  - VISUAL DISTURBANCE [None]
  - VOMITING [None]
  - YAWNING [None]
